FAERS Safety Report 15741185 (Version 1)
Quarter: 2018Q4

REPORT INFORMATION
  Report Type: Spontaneous
  Country: US (occurrence: US)
  Receive Date: 20181204
  Receipt Date: 20181204
  Transmission Date: 20190205
  Serious: Yes (Hospitalization, Disabling)
  Sender: FDA-Public Use
  Company Number: None

PATIENT
  Age: 53 Year
  Sex: Female
  Weight: 62.6 kg

DRUGS (1)
  1. AMLODIPINE 2.5 MG [Suspect]
     Active Substance: AMLODIPINE BESYLATE
     Indication: HYPERTENSION
     Dosage: ?          QUANTITY:2.5 MG MILLIGRAM(S);OTHER FREQUENCY:1 PILL, DAILY;?
     Route: 048
     Dates: start: 20180217, end: 20180713

REACTIONS (9)
  - Muscle spasms [None]
  - Tinnitus [None]
  - Joint noise [None]
  - Arthralgia [None]
  - Pain in extremity [None]
  - Paraesthesia [None]
  - Musculoskeletal pain [None]
  - Neuralgia [None]
  - Pain in jaw [None]

NARRATIVE: CASE EVENT DATE: 201803
